FAERS Safety Report 15811153 (Version 2)
Quarter: 2019Q1

REPORT INFORMATION
  Report Type: Report from Study
  Country: NL (occurrence: NL)
  Receive Date: 20190111
  Receipt Date: 20190314
  Transmission Date: 20190417
  Serious: Yes (Death, Hospitalization, Other)
  Sender: FDA-Public Use
  Company Number: NL-ALK-ABELLO A/S-2019AA000012

PATIENT

DRUGS (3)
  1. ACARIZAX [Suspect]
     Active Substance: DERMATOPHAGOIDES FARINAE\DERMATOPHAGOIDES PTERONYSSINUS
     Indication: MITE ALLERGY
     Dosage: 1 TAB, QD
     Dates: start: 20180111, end: 20181227
  2. FLIXONASE                          /00972201/ [Concomitant]
     Indication: NASAL POLYPS
     Dosage: 1 DOSE DAILY
     Dates: start: 20170918
  3. VENTOLIN [Concomitant]
     Active Substance: ALBUTEROL SULFATE
     Indication: ASTHMA
     Dosage: 1 UNIT DAILY
     Dates: start: 20171114

REACTIONS (5)
  - Ischaemia [Fatal]
  - Hemiparesis [Fatal]
  - Carotid artery dissection [Fatal]
  - Pneumonia aspiration [Fatal]
  - Urinary tract infection [Fatal]

NARRATIVE: CASE EVENT DATE: 20181212
